FAERS Safety Report 24927802 (Version 1)
Quarter: 2025Q1

REPORT INFORMATION
  Report Type: Spontaneous
  Country: FR (occurrence: FR)
  Receive Date: 20250205
  Receipt Date: 20250205
  Transmission Date: 20250408
  Serious: Yes (Hospitalization)
  Sender: ACCORD
  Company Number: None

PATIENT
  Age: 67 Year
  Sex: Male
  Weight: 73 kg

DRUGS (6)
  1. EPLERENONE [Suspect]
     Active Substance: EPLERENONE
     Indication: Cardiac failure
     Dosage: LONG COURSE
  2. SACUBITRIL\VALSARTAN [Suspect]
     Active Substance: SACUBITRIL\VALSARTAN
     Indication: Cardiac failure
     Dosage: 97 MG/103 MG, FILM-COATED TABLET
     Dates: start: 20240215, end: 20240626
  3. DAPAGLIFLOZIN [Concomitant]
     Active Substance: DAPAGLIFLOZIN
  4. BISOPROLOL [Concomitant]
     Active Substance: BISOPROLOL
  5. ATORVASTATIN [Concomitant]
     Active Substance: ATORVASTATIN
  6. REGITINE [Concomitant]
     Active Substance: PHENTOLAMINE MESYLATE

REACTIONS (3)
  - Acute kidney injury [Recovered/Resolved]
  - Hyponatraemia [Recovering/Resolving]
  - Hyperkalaemia [Recovering/Resolving]

NARRATIVE: CASE EVENT DATE: 20240626
